FAERS Safety Report 10242727 (Version 2)
Quarter: 2014Q2

REPORT INFORMATION
  Report Type: Report from Study
  Country: CN (occurrence: CN)
  Receive Date: 20140617
  Receipt Date: 20140617
  Transmission Date: 20141212
  Serious: Yes (Death, Hospitalization)
  Sender: FDA-Public Use
  Company Number: CN-CELGENEUS-035-CCAZA-14021309

PATIENT
  Age: 59 Year
  Sex: Female
  Weight: 63 kg

DRUGS (3)
  1. AZACITIDINE INJECTABLE [Suspect]
     Indication: MYELODYSPLASTIC SYNDROME
     Dosage: 124.5 MILLIGRAM/SQ. METER
     Route: 058
     Dates: start: 20130926, end: 20131002
  2. AZACITIDINE INJECTABLE [Suspect]
     Dosage: 125 MILLIGRAM/SQ. METER
     Route: 058
     Dates: start: 20140120, end: 20140126
  3. AZACITIDINE INJECTABLE [Suspect]
     Dosage: 125 MILLIGRAM/SQ. METER
     Route: 058
     Dates: end: 20140315

REACTIONS (1)
  - Lung infection [Fatal]
